FAERS Safety Report 4876595-0 (Version None)
Quarter: 2005Q4

REPORT INFORMATION
  Report Type: 
  Country: None (occurrence: None)
  Receive Date: 20051206
  Receipt Date: 20051024
  Transmission Date: 20060501
  Serious: No
  Sender: FDA-Public Use
  Company Number: USA0510111506

PATIENT
  Age: 42 Year
  Sex: Female

DRUGS (4)
  1. CYMBALTA [Suspect]
     Indication: DEPRESSION
     Dosage: 120 MG DAY
     Dates: start: 20051015
  2. INSULIN [Concomitant]
  3. ATENOLOL [Concomitant]
  4. COZAAR [Concomitant]

REACTIONS (2)
  - FATIGUE [None]
  - MEDICATION ERROR [None]
